FAERS Safety Report 8884000 (Version 3)
Quarter: 2012Q4

REPORT INFORMATION
  Report Type: 
  Country: US (occurrence: US)
  Receive Date: 20121102
  Receipt Date: 20121129
  Transmission Date: 20130627
  Serious: Yes (Other)
  Sender: FDA-Public Use
  Company Number: US-ASTRAZENECA-2000UW01068

PATIENT
  Age: 90 Year
  Sex: Male
  Weight: 88.5 kg

DRUGS (11)
  1. ZESTORETIC [Suspect]
     Indication: HYPERTENSION
     Dosage: 20 MG DAILY
     Route: 048
     Dates: start: 1994
  2. LISINOPRIL [Suspect]
     Indication: BLOOD PRESSURE ABNORMAL
     Route: 048
  3. BICALUTAMIDE [Suspect]
     Indication: PROSTATIC SPECIFIC ANTIGEN INCREASED
     Route: 048
     Dates: start: 20120905
  4. LIPITOR PARKE, DAVIS AND COMPANY [Concomitant]
     Route: 048
     Dates: start: 1998
  5. METOPROLOL TARTRATE [Concomitant]
     Indication: BLOOD PRESSURE ABNORMAL
     Route: 048
  6. AMLODIPINE [Concomitant]
     Indication: BLOOD PRESSURE ABNORMAL
     Route: 048
  7. CENTRUM VITAMIN [Concomitant]
     Dosage: DAILY
     Route: 048
  8. CO-Q-10 ENZYME [Concomitant]
     Dosage: BID
     Route: 048
  9. OCCUVITE [Concomitant]
     Indication: EYE DISORDER
  10. FISH OIL [Concomitant]
     Indication: VITAMIN SUPPLEMENTATION
     Route: 048
  11. AVODART [Concomitant]
     Indication: PROSTATIC SPECIFIC ANTIGEN INCREASED

REACTIONS (14)
  - Cataract [Unknown]
  - Prostatic specific antigen increased [Unknown]
  - Metastases to lymph nodes [Unknown]
  - Furuncle [Unknown]
  - Limb discomfort [Unknown]
  - Pain in extremity [Unknown]
  - Macular degeneration [Unknown]
  - Drug hypersensitivity [Unknown]
  - Walking aid user [Unknown]
  - Pain in extremity [Unknown]
  - Rash vesicular [Not Recovered/Not Resolved]
  - Rash [Unknown]
  - Lip swelling [Unknown]
  - Off label use [Unknown]
